FAERS Safety Report 8900734 (Version 1)
Quarter: 2012Q4

REPORT INFORMATION
  Report Type: 
  Country: CA (occurrence: CA)
  Receive Date: 20121109
  Receipt Date: 20121109
  Transmission Date: 20130627
  Serious: Yes (Hospitalization, Other)
  Sender: FDA-Public Use
  Company Number: PHHY2008CA03253

PATIENT
  Sex: Female

DRUGS (3)
  1. SANDOSTATIN LAR [Suspect]
     Indication: METASTATIC GASTRIC CANCER
     Dosage: 20 mg,every 4 weeks
     Route: 030
     Dates: start: 20070601
  2. SYNTHROID [Concomitant]
     Dosage: 75 mcg, QD
  3. APO OMEPRAZOLE [Concomitant]
     Indication: DYSPEPSIA
     Dosage: 20 mg, BID before meals

REACTIONS (8)
  - Abdominal hernia [Unknown]
  - Dry throat [Unknown]
  - Dry mouth [Unknown]
  - Nervousness [Recovered/Resolved]
  - Weight increased [Unknown]
  - Flushing [Unknown]
  - Hypertension [Unknown]
  - Hypoglycaemia [Unknown]
